FAERS Safety Report 9422732 (Version 1)
Quarter: 2013Q3

REPORT INFORMATION
  Report Type: Spontaneous
  Country: US (occurrence: US)
  Receive Date: 20130726
  Receipt Date: 20130726
  Transmission Date: 20140515
  Serious: No
  Sender: FDA-Public Use
  Company Number: US-MYLANLABS-2012S1018668

PATIENT
  Age: 44 Year
  Sex: Male
  Weight: 65.77 kg

DRUGS (1)
  1. TRAMADOL HYDROCHLORIDE TABLETS [Suspect]
     Indication: PAIN
     Route: 048
     Dates: start: 201206, end: 20120902

REACTIONS (3)
  - Paraesthesia [Recovered/Resolved]
  - Burning sensation [Recovered/Resolved]
  - Hypoaesthesia [Recovered/Resolved]
